FAERS Safety Report 16315079 (Version 1)
Quarter: 2019Q2

REPORT INFORMATION
  Report Type: Spontaneous
  Country: PT (occurrence: PT)
  Receive Date: 20190515
  Receipt Date: 20190515
  Transmission Date: 20190711
  Serious: Yes (Disabling, Other)
  Sender: FDA-Public Use
  Company Number: PT-TEVA-2019-PT-1048806

PATIENT
  Age: 67 Year
  Sex: Female

DRUGS (6)
  1. EUTIROX [Concomitant]
     Active Substance: LEVOTHYROXINE SODIUM
  2. LERCANIDIPINE [Concomitant]
     Active Substance: LERCANIDIPINE
     Route: 065
  3. FUROSEMIDE. [Concomitant]
     Active Substance: FUROSEMIDE
     Route: 065
  4. DAFLON 500 [Concomitant]
     Active Substance: DIOSMIN\HESPERIDIN
  5. ATORVASTATIN [Suspect]
     Active Substance: ATORVASTATIN
     Indication: HYPERCHOLESTEROLAEMIA
     Dosage: 10 MG FOR EVERY 1 DAY  10 MG AT DINNER
     Route: 048
     Dates: start: 20040101, end: 20180101
  6. ESOMEPRAZOLE. [Concomitant]
     Active Substance: ESOMEPRAZOLE MAGNESIUM
     Route: 065

REACTIONS (3)
  - Muscular weakness [Recovering/Resolving]
  - Myalgia [Recovering/Resolving]
  - Dyspnoea [Recovering/Resolving]

NARRATIVE: CASE EVENT DATE: 20170101
